FAERS Safety Report 5344504-6 (Version None)
Quarter: 2007Q2

REPORT INFORMATION
  Report Type: 
  Country: None (occurrence: None)
  Receive Date: 20070604
  Receipt Date: 20070523
  Transmission Date: 20071010
  Serious: Yes (Hospitalization, Other)
  Sender: FDA-Public Use
  Company Number: US-AMGEN-STX226274

PATIENT
  Sex: Female
  Weight: 74 kg

DRUGS (2)
  1. ENBREL [Suspect]
     Indication: RHEUMATOID ARTHRITIS
     Route: 058
     Dates: start: 19990713
  2. METHOTREXATE [Concomitant]
     Route: 048
     Dates: start: 20070101

REACTIONS (6)
  - GASTROINTESTINAL INFECTION [None]
  - HIP ARTHROPLASTY [None]
  - INFECTION [None]
  - INJECTION SITE PAIN [None]
  - SEPSIS [None]
  - URINARY TRACT INFECTION [None]
